FAERS Safety Report 4819599-6 (Version None)
Quarter: 2005Q4

REPORT INFORMATION
  Report Type: 
  Country: None (occurrence: None)
  Receive Date: 20051102
  Receipt Date: 20050922
  Transmission Date: 20060501
  Serious: Yes (Other)
  Sender: FDA-Public Use
  Company Number: 214613

PATIENT
  Age: 36 Year
  Sex: Female
  Weight: 63.4 kg

DRUGS (9)
  1. XOLAIR [Suspect]
     Indication: ASTHMA
     Dosage: 150 MG, Q4W, SUBCUTANEOUS
     Route: 058
     Dates: start: 20040805
  2. ALBUTEROL (ALBUTEROL, SLBUTEROL SULFATE) [Concomitant]
  3. ADVAIR (SALMETEROL XINAFOATE, FLUTICASONE PROPIONATE) [Concomitant]
  4. MEDROL [Concomitant]
  5. UNIPHYL [Concomitant]
  6. ZANTAC [Concomitant]
  7. PRENATAL VITS (MULTIVITAMINS NOS, MINERALS NOS) [Concomitant]
  8. SINGULAIR [Concomitant]
  9. FOSAMAX [Concomitant]

REACTIONS (3)
  - CAESAREAN SECTION [None]
  - DRUG EXPOSURE DURING PREGNANCY [None]
  - PREGNANCY [None]
